FAERS Safety Report 24461321 (Version 1)
Quarter: 2024Q4

REPORT INFORMATION
  Report Type: Report from Study
  Country: ZA (occurrence: ZA)
  Receive Date: 20241018
  Receipt Date: 20241018
  Transmission Date: 20250115
  Serious: No
  Sender: ROCHE
  Company Number: ZA-ROCHE-3530196

PATIENT
  Age: 55 Year
  Sex: Male

DRUGS (1)
  1. RITUXIMAB [Suspect]
     Active Substance: RITUXIMAB
     Indication: Granulomatosis with polyangiitis
     Dosage: LAST ADMINISTRATION DATE: //2022
     Route: 041

REACTIONS (4)
  - Blood creatinine increased [Unknown]
  - C-reactive protein increased [Unknown]
  - Granulomatosis with polyangiitis [Unknown]
  - Off label use [Unknown]

NARRATIVE: CASE EVENT DATE: 20240307
